FAERS Safety Report 17058108 (Version 1)
Quarter: 2019Q4

REPORT INFORMATION
  Report Type: Spontaneous
  Country: US (occurrence: US)
  Receive Date: 20191023
  Receipt Date: 20191023
  Transmission Date: 20200122
  Serious: No
  Sender: FDA-Public Use
  Company Number: None

PATIENT
  Sex: Female

DRUGS (1)
  1. RASUVO [Suspect]
     Active Substance: METHOTREXATE SODIUM
     Indication: ILL-DEFINED DISORDER
     Dosage: ?          OTHER DOSE:25MG/.5ML;?
     Route: 058
     Dates: start: 20190717, end: 201910

REACTIONS (1)
  - Unevaluable event [None]
